FAERS Safety Report 12600989 (Version 1)
Quarter: 2016Q3

REPORT INFORMATION
  Report Type: Report from Study
  Country: RO (occurrence: RO)
  Receive Date: 20160728
  Receipt Date: 20160728
  Transmission Date: 20161109
  Serious: Yes (Death, Hospitalization)
  Sender: FDA-Public Use
  Company Number: RO-ABBVIE-16K-135-1684432-00

PATIENT
  Age: 55 Year
  Sex: Female

DRUGS (3)
  1. VENLAFAXIN [Concomitant]
     Active Substance: VENLAFAXINE HYDROCHLORIDE
     Indication: DEPRESSION
     Route: 048
     Dates: start: 2015, end: 20160714
  2. DUODOPA [Suspect]
     Active Substance: CARBIDOPA\LEVODOPA
     Indication: PARKINSON^S DISEASE
     Dosage: 7ML/6.8ML/3 ML (24 HOURS)
     Route: 050
     Dates: start: 20150227, end: 20160714
  3. LIORESAL [Concomitant]
     Active Substance: BACLOFEN
     Indication: HEMIPARESIS
     Route: 048
     Dates: start: 2015, end: 20160714

REACTIONS (2)
  - Coma [Fatal]
  - Pneumonia [Fatal]

NARRATIVE: CASE EVENT DATE: 20160711
